FAERS Safety Report 8223496-6 (Version None)
Quarter: 2012Q1

REPORT INFORMATION
  Report Type: 
  Country: None (occurrence: None)
  Receive Date: 20120321
  Receipt Date: 20120314
  Transmission Date: 20120608
  Serious: No
  Sender: FDA-Public Use
  Company Number: US-PFIZER INC-2012068182

PATIENT
  Sex: Female

DRUGS (5)
  1. OFLOXACIN [Suspect]
     Dosage: UNK
  2. CELEXA [Suspect]
     Dosage: UNK
  3. COMPAZINE [Suspect]
     Dosage: UNK
  4. PHENOBARBITAL TAB [Suspect]
     Dosage: UNK
  5. POTASSIUM PENCILLIN G [Suspect]
     Dosage: UNK

REACTIONS (1)
  - DRUG HYPERSENSITIVITY [None]
